FAERS Safety Report 4319713-5 (Version None)
Quarter: 2004Q1

REPORT INFORMATION
  Report Type: 
  Country: None (occurrence: None)
  Receive Date: 20040317
  Receipt Date: 20040305
  Transmission Date: 20041129
  Serious: Yes (Death)
  Sender: FDA-Public Use
  Company Number: 10050649-G016733-0

PATIENT
  Age: 83 Year
  Sex: Female

DRUGS (1)
  1. 1D4192 - POTASSIUM CHLORIDE FOR INJECTION CONCENTRATE, USP IN BULK DIS [Suspect]
     Indication: RENAL FAILURE
     Dosage: FREQUENCY - CONTINUOUS ROUTE-INTRAVENOUS-DIALYSIS
     Route: 042
     Dates: start: 20040305

REACTIONS (2)
  - CARDIAC ARREST [None]
  - MEDICATION ERROR [None]
